FAERS Safety Report 15610032 (Version 1)
Quarter: 2018Q4

REPORT INFORMATION
  Report Type: Spontaneous
  Country: US (occurrence: US)
  Receive Date: 20181113
  Receipt Date: 20181113
  Transmission Date: 20190205
  Serious: No
  Sender: FDA-Public Use
  Company Number: US-TEVA-2018-US-973629

PATIENT
  Sex: Female

DRUGS (1)
  1. DIAZEPAM. [Suspect]
     Active Substance: DIAZEPAM
     Indication: MUSCLE SPASMS
     Dates: start: 20181101

REACTIONS (5)
  - Wrong technique in product usage process [Unknown]
  - Blood pressure increased [Unknown]
  - Product prescribing error [Unknown]
  - Headache [Unknown]
  - Product taste abnormal [Unknown]
